FAERS Safety Report 25649479 (Version 1)
Quarter: 2025Q3

REPORT INFORMATION
  Report Type: Spontaneous
  Country: CN (occurrence: CN)
  Receive Date: 20250806
  Receipt Date: 20250806
  Transmission Date: 20251021
  Serious: Yes (Other)
  Sender: RANBAXY
  Company Number: CN-SUN PHARMACEUTICAL INDUSTRIES LTD-2025R1-516019

PATIENT
  Age: 89 Year
  Sex: Male

DRUGS (1)
  1. ODOMZO [Suspect]
     Active Substance: SONIDEGIB
     Indication: Basal cell carcinoma
     Dosage: 200 MILLIGRAM, QD
     Route: 048
     Dates: start: 20250521, end: 20250607

REACTIONS (12)
  - Depressed level of consciousness [Unknown]
  - Syncope [Unknown]
  - Asthenia [Unknown]
  - Fatigue [Unknown]
  - Listless [Unknown]
  - Pyrexia [Unknown]
  - Headache [Unknown]
  - Hypoaesthesia [Unknown]
  - Diarrhoea [Unknown]
  - Blood glucose increased [Unknown]
  - Blood pressure increased [Unknown]
  - Dysstasia [Unknown]

NARRATIVE: CASE EVENT DATE: 20250608
